FAERS Safety Report 18945920 (Version 2)
Quarter: 2021Q2

REPORT INFORMATION
  Report Type: Spontaneous
  Country: US (occurrence: US)
  Receive Date: 20210226
  Receipt Date: 20210606
  Transmission Date: 20210717
  Serious: Yes (Other)
  Sender: FDA-Public Use
  Company Number: US-JNJFOC-20210233120

PATIENT
  Sex: Male

DRUGS (2)
  1. REMICADE [Suspect]
     Active Substance: INFLIXIMAB
     Indication: PRODUCT USED FOR UNKNOWN INDICATION
     Route: 042
  2. PREVNAR 13 [Concomitant]
     Active Substance: PNEUMOCOCCAL 13-VALENT CONJUGATE VACCINE
     Indication: PRODUCT USED FOR UNKNOWN INDICATION

REACTIONS (11)
  - Seizure [Recovered/Resolved]
  - Off label use [Unknown]
  - Fatigue [Unknown]
  - Cerebrovascular accident [Unknown]
  - Incorrect drug administration rate [Unknown]
  - Immune system disorder [Unknown]
  - Hyperhidrosis [Unknown]
  - Pneumonia [Unknown]
  - Dyspepsia [Unknown]
  - Nonspecific reaction [Unknown]
  - Feeling cold [Unknown]
